FAERS Safety Report 6237720-2 (Version None)
Quarter: 2009Q2

REPORT INFORMATION
  Report Type: 
  Country: None (occurrence: None)
  Receive Date: 20090617
  Receipt Date: 20090608
  Transmission Date: 20091009
  Serious: Yes (Other)
  Sender: FDA-Public Use
  Company Number: CLOF-1000582

PATIENT
  Age: 43 Year
  Sex: Male

DRUGS (1)
  1. EVOLTRA (CLOFARABINE) SOLUTION FOR INFUSION [Suspect]
     Indication: ACUTE MYELOID LEUKAEMIA
     Dates: start: 20090506, end: 20090506

REACTIONS (3)
  - BRONCHOSPASM [None]
  - CHILLS [None]
  - PYREXIA [None]
